FAERS Safety Report 18622242 (Version 1)
Quarter: 2020Q4

REPORT INFORMATION
  Report Type: Spontaneous
  Country: IT (occurrence: IT)
  Receive Date: 20201216
  Receipt Date: 20201216
  Transmission Date: 20210114
  Serious: Yes (Other)
  Sender: FDA-Public Use
  Company Number: IT-UCBSA-2020050869

PATIENT
  Age: 44 Year
  Sex: Male

DRUGS (1)
  1. KEPPRA [Suspect]
     Active Substance: LEVETIRACETAM
     Indication: EPILEPSY
     Dosage: 100 MILLIGRAM, DAILY
     Route: 048
     Dates: start: 20191112

REACTIONS (5)
  - Product use issue [Unknown]
  - Psychomotor hyperactivity [Recovering/Resolving]
  - Nervousness [Recovering/Resolving]
  - Underdose [Unknown]
  - Feeling jittery [Recovering/Resolving]

NARRATIVE: CASE EVENT DATE: 20191112
